FAERS Safety Report 17143263 (Version 1)
Quarter: 2019Q4

REPORT INFORMATION
  Report Type: Spontaneous
  Country: BR (occurrence: BR)
  Receive Date: 20191211
  Receipt Date: 20191211
  Transmission Date: 20200122
  Serious: Yes (Other)
  Sender: FDA-Public Use
  Company Number: BR-AMERICAN REGENT INC-20182263

PATIENT
  Age: 58 Year
  Sex: Female

DRUGS (2)
  1. TRANSAMIN [Concomitant]
     Active Substance: TRANEXAMIC ACID
     Indication: PRODUCT USED FOR UNKNOWN INDICATION
     Dosage: 500 MG (2 IN 1 D)
     Route: 065
     Dates: start: 20181112
  2. VENOFER [Suspect]
     Active Substance: IRON SUCROSE
     Dosage: 1 AMPOULE/DAY FOR 5 DAYS
     Dates: start: 20181113

REACTIONS (1)
  - Vein rupture [Unknown]

NARRATIVE: CASE EVENT DATE: 20181113
